FAERS Safety Report 25783038 (Version 1)
Quarter: 2025Q3

REPORT INFORMATION
  Report Type: Spontaneous
  Country: US (occurrence: US)
  Receive Date: 20250910
  Receipt Date: 20250910
  Transmission Date: 20251021
  Serious: No
  Sender: SANOFI AVENTIS
  Company Number: US-SA-2025SA266898

PATIENT
  Age: 14 Year
  Sex: Female

DRUGS (5)
  1. DUPIXENT [Suspect]
     Active Substance: DUPILUMAB
     Indication: Dermatitis
     Dosage: 300 MG, QOW
     Route: 058
     Dates: start: 20240410
  2. EPINEPHRINE [Concomitant]
     Active Substance: EPINEPHRINE
  3. GENOTROPIN [Concomitant]
     Active Substance: SOMATROPIN
  4. MOMETASONE [Concomitant]
     Active Substance: MOMETASONE
  5. NORDITROPIN [Concomitant]
     Active Substance: SOMATROPIN

REACTIONS (4)
  - Discomfort [Unknown]
  - Rash [Unknown]
  - Drug ineffective [Unknown]
  - Product use in unapproved indication [Unknown]

NARRATIVE: CASE EVENT DATE: 20240410
